FAERS Safety Report 5114076-X (Version None)
Quarter: 2006Q3

REPORT INFORMATION
  Report Type: 
  Country: None (occurrence: None)
  Receive Date: 20060925
  Receipt Date: 20060818
  Transmission Date: 20061208
  Serious: Yes (Other)
  Sender: FDA-Public Use
  Company Number: US-GLAXOSMITHKLINE-A0618255A

PATIENT
  Age: 46 Year
  Sex: Female
  Weight: 85 kg

DRUGS (2)
  1. ADVAIR DISKUS 100/50 [Suspect]
     Indication: ASTHMA
     Route: 055
     Dates: start: 20050701, end: 20060301
  2. SINGULAIR [Concomitant]

REACTIONS (3)
  - ABDOMINAL PAIN [None]
  - MOVEMENT DISORDER [None]
  - MUSCLE SPASMS [None]
